FAERS Safety Report 6805887-0 (Version None)
Quarter: 2010Q2

REPORT INFORMATION
  Report Type: 
  Country: None (occurrence: None)
  Receive Date: 20100629
  Receipt Date: 20071025
  Transmission Date: 20101027
  Serious: No
  Sender: FDA-Public Use
  Company Number: US-PFIZER INC-2007090482

PATIENT
  Age: 63 Year
  Sex: Male
  Weight: 113.63 kg

DRUGS (7)
  1. TIKOSYN [Suspect]
     Indication: ATRIAL FIBRILLATION
     Dates: start: 20070101
  2. GLIPIZIDE [Suspect]
     Indication: DIABETES MELLITUS
     Dates: start: 20070101
  3. HYDROCHLOROTHIAZIDE [Concomitant]
     Dates: end: 20070101
  4. METFORMIN HCL [Concomitant]
     Dates: end: 20070101
  5. ALLEGRA [Concomitant]
     Indication: HYPERSENSITIVITY
  6. COUMADIN [Concomitant]
  7. LISINOPRIL [Concomitant]

REACTIONS (2)
  - OEDEMA PERIPHERAL [None]
  - TREMOR [None]
